FAERS Safety Report 8218189-5 (Version None)
Quarter: 2012Q1

REPORT INFORMATION
  Report Type: 
  Country: None (occurrence: None)
  Receive Date: 20120319
  Receipt Date: 20120308
  Transmission Date: 20120608
  Serious: Yes (Other)
  Sender: FDA-Public Use
  Company Number: MX-SANOFI-AVENTIS-2012SA016015

PATIENT

DRUGS (1)
  1. ENOXAPARIN SODIUM [Suspect]
     Route: 058

REACTIONS (6)
  - HAEMORRHAGE [None]
  - URINE ODOUR ABNORMAL [None]
  - IRRITABILITY [None]
  - EPISTAXIS [None]
  - CHROMATURIA [None]
  - AGGRESSION [None]
